FAERS Safety Report 5958651-9 (Version None)
Quarter: 2008Q4

REPORT INFORMATION
  Report Type: 
  Country: None (occurrence: None)
  Receive Date: 20081119
  Receipt Date: 20081107
  Transmission Date: 20090506
  Serious: Yes (Hospitalization, Other)
  Sender: FDA-Public Use
  Company Number: CZ-PFIZER INC-2008094068

PATIENT
  Sex: Female

DRUGS (3)
  1. SERTRALINE [Suspect]
     Dosage: DAILY DOSE:50MG
     Route: 048
  2. OLANZAPINE [Suspect]
     Route: 048
  3. OLANZAPINE [Suspect]
     Route: 048

REACTIONS (8)
  - ACTIVITIES OF DAILY LIVING IMPAIRED [None]
  - AGGRESSION [None]
  - HALLUCINATION, AUDITORY [None]
  - INSOMNIA [None]
  - IRRITABILITY [None]
  - PSYCHOTIC DISORDER [None]
  - SCHIZOPHRENIA, PARANOID TYPE [None]
  - WEIGHT INCREASED [None]
